FAERS Safety Report 17827890 (Version 1)
Quarter: 2020Q2

REPORT INFORMATION
  Report Type: Spontaneous
  Country: US (occurrence: US)
  Receive Date: 20200527
  Receipt Date: 20200527
  Transmission Date: 20200714
  Serious: No
  Sender: FDA-Public Use
  Company Number: US-SA-2020SA132227

PATIENT
  Age: 45 Year
  Sex: Female

DRUGS (1)
  1. DUPIXENT [Suspect]
     Active Substance: DUPILUMAB
     Indication: DERMATITIS ATOPIC
     Dosage: 300 MG, QOW
     Route: 058

REACTIONS (6)
  - Cartilage injury [Unknown]
  - Joint stiffness [Unknown]
  - Bone disorder [Unknown]
  - Arthralgia [Unknown]
  - Osteosclerosis [Unknown]
  - Meniscus injury [Unknown]

NARRATIVE: CASE EVENT DATE: 20190117
